FAERS Safety Report 4433619-2 (Version None)
Quarter: 2004Q3

REPORT INFORMATION
  Report Type: 
  Country: None (occurrence: None)
  Receive Date: 20040826
  Receipt Date: 20040818
  Transmission Date: 20050211
  Serious: Yes (Death, Other)
  Sender: FDA-Public Use
  Company Number: US-BRISTOL-MYERS SQUIBB COMPANY-12674438

PATIENT

DRUGS (3)
  1. CARMUSTINE [Suspect]
     Indication: BRAIN STEM GLIOMA
     Dosage: 200 MG/M^2, DAY 1 OR 150 MG/M^2, DAY 3.
     Route: 042
  2. RADIATION THERAPY [Suspect]
     Indication: BRAIN STEM GLIOMA
     Dosage: TOTAL DOSE=64.8 GY
  3. INTERFERON ALPHA [Concomitant]
     Indication: BRAIN STEM GLIOMA
     Dosage: 12 MIU/M^2 ON DAYS 1-3, WEEKS 1,3, AND 5.
     Route: 058

REACTIONS (11)
  - HAEMORRHAGE [None]
  - HEPATOTOXICITY [None]
  - INFECTION [None]
  - LEUKOPENIA [None]
  - NAUSEA [None]
  - NEUROTOXICITY [None]
  - NEUTROPENIC SEPSIS [None]
  - PULMONARY TOXICITY [None]
  - PYREXIA [None]
  - THROMBOCYTOPENIA [None]
  - VOMITING [None]
